FAERS Safety Report 20208690 (Version 1)
Quarter: 2021Q4

REPORT INFORMATION
  Report Type: Spontaneous
  Country: FR (occurrence: FR)
  Receive Date: 20211220
  Receipt Date: 20211220
  Transmission Date: 20220303
  Serious: Yes (Other)
  Sender: FDA-Public Use
  Company Number: FR-PFIZER INC-202101773877

PATIENT
  Age: 16 Month
  Sex: Female

DRUGS (1)
  1. NEURONTIN [Suspect]
     Active Substance: GABAPENTIN
     Dosage: 50 MG, DAILY (100 MG DILUTED IN 4 ML: 2 ML TWICE DAILY)
     Dates: start: 20211212

REACTIONS (5)
  - Off label use [Unknown]
  - Off label use [Unknown]
  - Product preparation issue [Unknown]
  - Swelling of eyelid [Unknown]
  - Fatigue [Unknown]

NARRATIVE: CASE EVENT DATE: 20211212
